FAERS Safety Report 12962814 (Version 3)
Quarter: 2017Q1

REPORT INFORMATION
  Report Type: Report from Study
  Country: DE (occurrence: DE)
  Receive Date: 20161121
  Receipt Date: 20170301
  Transmission Date: 20170428
  Serious: Yes (Hospitalization, Disabling)
  Sender: FDA-Public Use
  Company Number: DE-ROCHE-1791721

PATIENT
  Sex: Female

DRUGS (19)
  1. METOPROLOL. [Concomitant]
     Active Substance: METOPROLOL
  2. FENTANYL. [Concomitant]
     Active Substance: FENTANYL
     Dosage: PATCH
     Route: 065
  3. SIMVASTATIN. [Concomitant]
     Active Substance: SIMVASTATIN
  4. ENAHEXAL [Concomitant]
     Active Substance: ENALAPRIL MALEATE
  5. LYRICA [Concomitant]
     Active Substance: PREGABALIN
  6. MACROGOL [Concomitant]
     Active Substance: POLYETHYLENE GLYCOLS
  7. NOVALGIN [Concomitant]
     Active Substance: METAMIZOLE SODIUM
  8. NOVAMINSULFON [Concomitant]
     Active Substance: METAMIZOLE
  9. HYDROCHLOROTHIAZID [Concomitant]
     Active Substance: HYDROCHLOROTHIAZIDE
     Dosage: 300-400 MG
     Route: 065
  10. HYDROXYCHLOROQUINE [Concomitant]
     Active Substance: HYDROXYCHLOROQUINE
     Indication: RHEUMATOID ARTHRITIS
     Dosage: DOSE- 300/400
     Route: 065
  11. RITUXIMAB [Suspect]
     Active Substance: RITUXIMAB
     Indication: RHEUMATOID ARTHRITIS
     Dosage: DATE OF LAST DOSE PRIOR TO EVENT :01/SEP/2015
     Route: 042
     Dates: start: 200902
  12. PANTOPRAZOL [Concomitant]
     Active Substance: PANTOPRAZOLE SODIUM
  13. METHOTREXATE. [Concomitant]
     Active Substance: METHOTREXATE
     Indication: RHEUMATOID ARTHRITIS
     Route: 065
  14. INSULIN [Concomitant]
     Active Substance: INSULIN NOS
  15. PALLADON [Concomitant]
     Active Substance: HYDROMORPHONE
  16. BELOC-ZOK MITE [Concomitant]
     Active Substance: METOPROLOL SUCCINATE
  17. HYDROMORPHONE [Concomitant]
     Active Substance: HYDROMORPHONE
  18. ALENDRONIC ACID [Concomitant]
     Active Substance: ALENDRONIC ACID
  19. MARCUMAR [Concomitant]
     Active Substance: PHENPROCOUMON

REACTIONS (5)
  - Leg amputation [Unknown]
  - Gangrene [Not Recovered/Not Resolved]
  - Impaired healing [Unknown]
  - Palpitations [Unknown]
  - Fistula [Not Recovered/Not Resolved]

NARRATIVE: CASE EVENT DATE: 20150428
